FAERS Safety Report 10972701 (Version 1)
Quarter: 2015Q1

REPORT INFORMATION
  Report Type: Other
  Country: DE (occurrence: DE)
  Receive Date: 20150331
  Receipt Date: 20150331
  Transmission Date: 20150721
  Serious: Yes (Death, Life-Threatening, Congenital Anomaly)
  Sender: FDA-Public Use
  Company Number: DE-MYLANLABS-2015M1009329

PATIENT

DRUGS (3)
  1. YASMIN [Concomitant]
     Active Substance: DROSPIRENONE\ETHINYL ESTRADIOL
     Indication: ORAL CONTRACEPTION
     Dosage: 3 MG, QD (0.03 [MG/D ] / 3 [MG/D ])
     Route: 064
  2. LAMOTRIGIN [Suspect]
     Active Substance: LAMOTRIGINE
     Indication: EPILEPSY
     Dosage: 300 [MG/D ]/ 100-0-200MG/D
     Route: 064
     Dates: start: 20131224, end: 20140911
  3. FOLSAEURE [Concomitant]
     Active Substance: FOLIC ACID
     Indication: PROPHYLAXIS OF NEURAL TUBE DEFECT
     Dosage: UNK (8. - 28. GESTATIONAL WEEK)
     Route: 064

REACTIONS (6)
  - Double outlet right ventricle [Fatal]
  - Ventricular septal defect [Unknown]
  - Atrial septal defect [Fatal]
  - Anomalous pulmonary venous connection [Fatal]
  - Foetal exposure during pregnancy [Unknown]
  - Death neonatal [Fatal]

NARRATIVE: CASE EVENT DATE: 20140911
